FAERS Safety Report 6607626-5 (Version None)
Quarter: 2010Q1

REPORT INFORMATION
  Report Type: 
  Country: None (occurrence: None)
  Receive Date: 20100217
  Receipt Date: 20100201
  Transmission Date: 20100710
  Serious: Yes (Other)
  Sender: FDA-Public Use
  Company Number: AECAN201000034

PATIENT
  Age: 30 Year
  Sex: Male

DRUGS (8)
  1. GAMUNEX [Suspect]
     Indication: MYELITIS
     Dosage: QD; IV
     Route: 042
     Dates: start: 20090914, end: 20091118
  2. GAMUNEX [Suspect]
  3. IGIVNEX [Suspect]
     Indication: MYELITIS
     Dosage: QD; IV
     Route: 042
     Dates: start: 20090914, end: 20091118
  4. IGIVNEX [Suspect]
  5. IGIVNEX [Suspect]
  6. IGIVNEX [Suspect]
  7. IGIVNEX [Suspect]
  8. IGIVNEX [Suspect]

REACTIONS (2)
  - ANXIETY [None]
  - TREPONEMA TEST FALSE POSITIVE [None]
